FAERS Safety Report 15112574 (Version 3)
Quarter: 2018Q4

REPORT INFORMATION
  Report Type: Report from Study
  Country: US (occurrence: US)
  Receive Date: 20180705
  Receipt Date: 20181015
  Transmission Date: 20190204
  Serious: Yes (Death, Hospitalization)
  Sender: FDA-Public Use
  Company Number: US-ACTELION-A-NJ2018-174847

PATIENT
  Age: 45 Year
  Sex: Female
  Weight: 95.24 kg

DRUGS (3)
  1. COUMADIN [Concomitant]
     Active Substance: WARFARIN SODIUM
  2. LETAIRIS [Concomitant]
     Active Substance: AMBRISENTAN
  3. VELETRI [Suspect]
     Active Substance: EPOPROSTENOL
     Indication: PULMONARY ARTERIAL HYPERTENSION
     Dosage: 36.25 NG/KG, PER MIN
     Route: 042

REACTIONS (5)
  - Pulmonary hypertension [Fatal]
  - Weight increased [Unknown]
  - Ascites [Unknown]
  - Oedema peripheral [Unknown]
  - Dyspnoea [Fatal]
